FAERS Safety Report 12764331 (Version 1)
Quarter: 2016Q3

REPORT INFORMATION
  Report Type: Spontaneous
  Country: US (occurrence: US)
  Receive Date: 20160920
  Receipt Date: 20160920
  Transmission Date: 20161109
  Serious: No
  Sender: FDA-Public Use
  Company Number: US-PFIZER INC-2016436117

PATIENT
  Age: 45 Year
  Sex: Female

DRUGS (5)
  1. TEMAZEPAM. [Concomitant]
     Active Substance: TEMAZEPAM
     Indication: MIGRAINE
     Dosage: 45 MG, DAILY, 15MG THREE CAPSULES BY MOUTH AT BEDTIME
     Route: 048
     Dates: start: 2010
  2. EFFEXOR XR [Suspect]
     Active Substance: VENLAFAXINE HYDROCHLORIDE
     Indication: POST-TRAUMATIC STRESS DISORDER
     Dosage: 150 MG, 2X/DAY, ONE CAPSULE BY MOUTH TWICE A DAY
     Route: 048
     Dates: start: 2014
  3. NAMENDA XR [Concomitant]
     Active Substance: MEMANTINE HYDROCHLORIDE
     Indication: MIGRAINE
     Dosage: 28 MG, DAILY, ONE TABLET BY MOUTH DAILY
     Route: 048
     Dates: start: 2014
  4. SKELAXIN [Concomitant]
     Active Substance: METAXALONE
     Indication: MIGRAINE
     Dosage: 1600 MG, 800MG TWO TABLETS
     Route: 048
     Dates: start: 2015
  5. TIZANIDINE. [Concomitant]
     Active Substance: TIZANIDINE
     Indication: MIGRAINE
     Dosage: 24 MG, DAILY, 4MG SIX TABLETS BY MOUTH AT BEDTIME
     Route: 048
     Dates: start: 2010

REACTIONS (7)
  - Balance disorder [Unknown]
  - Insomnia [Recovered/Resolved]
  - Drug hypersensitivity [Unknown]
  - Off label use [Unknown]
  - Nightmare [Recovered/Resolved]
  - Nervousness [Recovered/Resolved]
  - Drug dose omission [Unknown]

NARRATIVE: CASE EVENT DATE: 201510
